FAERS Safety Report 7645300-7 (Version None)
Quarter: 2011Q3

REPORT INFORMATION
  Report Type: 
  Country: None (occurrence: None)
  Receive Date: 20110729
  Receipt Date: 20110714
  Transmission Date: 20111222
  Serious: Yes (Other)
  Sender: FDA-Public Use
  Company Number: TW-WATSON-2011-11407

PATIENT
  Age: 31 Year
  Sex: Male

DRUGS (3)
  1. PHENYTOIN [Suspect]
     Indication: CONVULSION
     Dosage: UNK
  2. TOPIRAMATE [Suspect]
     Indication: CONVULSION
     Dosage: 200 MG, DAILY
  3. LEVETIRACETAM [Suspect]
     Indication: CONVULSION
     Dosage: UNK

REACTIONS (3)
  - PREMATURE EJACULATION [None]
  - AGRANULOCYTOSIS [None]
  - ERECTILE DYSFUNCTION [None]
